FAERS Safety Report 7136960-8 (Version None)
Quarter: 2010Q4

REPORT INFORMATION
  Report Type: 
  Country: None (occurrence: None)
  Receive Date: 20101119
  Receipt Date: 20101108
  Transmission Date: 20110411
  Serious: Yes (Life-Threatening, Hospitalization, Other)
  Sender: FDA-Public Use
  Company Number: 2010143908

PATIENT
  Age: 85 Year
  Sex: Male
  Weight: 61.2 kg

DRUGS (8)
  1. FRAGMIN [Suspect]
     Indication: DEEP VEIN THROMBOSIS
     Dosage: 125000 UNITS, SUBCUTANEOUS
     Route: 058
     Dates: start: 20100720
  2. REVLIMID [Suspect]
     Indication: ANAEMIA
     Dosage: 10 MG, 1X/DAY, ORAL, 10 MG, DAILY X21 Q4WEEKS, ORAL
     Route: 048
     Dates: start: 20100624, end: 20100813
  3. REVLIMID [Suspect]
     Indication: MYELOFIBROSIS
     Dosage: 10 MG, 1X/DAY, ORAL, 10 MG, DAILY X21 Q4WEEKS, ORAL
     Route: 048
     Dates: start: 20100624, end: 20100813
  4. REVLIMID [Suspect]
     Indication: ANAEMIA
     Dosage: 10 MG, 1X/DAY, ORAL, 10 MG, DAILY X21 Q4WEEKS, ORAL
     Route: 048
     Dates: start: 20100914
  5. REVLIMID [Suspect]
     Indication: MYELOFIBROSIS
     Dosage: 10 MG, 1X/DAY, ORAL, 10 MG, DAILY X21 Q4WEEKS, ORAL
     Route: 048
     Dates: start: 20100914
  6. ALLOPURINOL [Concomitant]
  7. INDOCIN [Concomitant]
  8. PREDNISONE TAB [Concomitant]

REACTIONS (8)
  - BLOOD ALBUMIN DECREASED [None]
  - BLOOD BILIRUBIN INCREASED [None]
  - DEEP VEIN THROMBOSIS [None]
  - FLUID RETENTION [None]
  - GOUT [None]
  - INTRA-ABDOMINAL HAEMORRHAGE [None]
  - OEDEMA PERIPHERAL [None]
  - PELVIC HAEMATOMA [None]
